FAERS Safety Report 13347260 (Version 3)
Quarter: 2017Q2

REPORT INFORMATION
  Report Type: Spontaneous
  Country: JP (occurrence: JP)
  Receive Date: 20170317
  Receipt Date: 20170420
  Transmission Date: 20170830
  Serious: Yes (Hospitalization)
  Sender: FDA-Public Use
  Company Number: JP-ELI_LILLY_AND_COMPANY-JP201703005806

PATIENT
  Age: 89 Year
  Sex: Female
  Weight: 58.2 kg

DRUGS (7)
  1. CYMBALTA [Suspect]
     Active Substance: DULOXETINE HYDROCHLORIDE
     Indication: DEPRESSION
     Dosage: 20 MG, BID
     Route: 048
     Dates: start: 20110729, end: 201608
  2. AVAPRO [Concomitant]
     Active Substance: IRBESARTAN
     Indication: CHRONIC KIDNEY DISEASE
     Dosage: 100 MG, BID
     Route: 048
     Dates: start: 20081108
  3. TAKECAB [Concomitant]
     Active Substance: VONOPRAZAN FUMURATE
     Indication: GASTROOESOPHAGEAL REFLUX DISEASE
     Dosage: 10 MG, QD
     Route: 048
     Dates: start: 20150403
  4. LASIX [Concomitant]
     Active Substance: FUROSEMIDE
     Indication: CHRONIC KIDNEY DISEASE
     Dosage: 10 MG, QD
     Dates: start: 20151211
  5. ATELEC [Concomitant]
     Active Substance: CILNIDIPINE
     Indication: CHRONIC KIDNEY DISEASE
     Dosage: 10 MG, BID
     Route: 048
     Dates: start: 20131202
  6. REFLEX                             /01293201/ [Suspect]
     Active Substance: MIRTAZAPINE
     Indication: DEPRESSION
     Dosage: 15 MG, QD
     Route: 048
     Dates: start: 20150525, end: 201608
  7. ALFAROL [Concomitant]
     Active Substance: ALFACALCIDOL
     Indication: CHRONIC KIDNEY DISEASE
     Dosage: 3 UG, WEEKLY (1/W)
     Route: 048
     Dates: start: 20150206

REACTIONS (3)
  - Muscular weakness [Recovered/Resolved]
  - Cerebral artery stenosis [Unknown]
  - Serotonin syndrome [Recovered/Resolved]

NARRATIVE: CASE EVENT DATE: 20160805
